FAERS Safety Report 15825180 (Version 3)
Quarter: 2019Q1

REPORT INFORMATION
  Report Type: Spontaneous
  Country: US (occurrence: US)
  Receive Date: 20190115
  Receipt Date: 20190226
  Transmission Date: 20190417
  Serious: No
  Sender: FDA-Public Use
  Company Number: US-PFIZER INC-2017146666

PATIENT
  Age: 6 Year
  Sex: Male
  Weight: 17 kg

DRUGS (9)
  1. GENOTROPIN [Suspect]
     Active Substance: SOMATROPIN
     Indication: GROWTH HORMONE DEFICIENCY
     Dosage: 1.0 MG, DAILY
     Route: 058
  2. GENOTROPIN [Suspect]
     Active Substance: SOMATROPIN
     Dosage: 1.2 UNK, 1X/DAY
  3. GENOTROPIN [Suspect]
     Active Substance: SOMATROPIN
     Indication: UNDERWEIGHT
     Dosage: 2 MG, 1X/DAY
     Route: 030
     Dates: end: 20180828
  4. GENOTROPIN [Suspect]
     Active Substance: SOMATROPIN
     Indication: BODY HEIGHT BELOW NORMAL
     Dosage: 0.7 MG, 1X/DAY, SEVEN DAYS A WEEK
     Dates: start: 20170323
  5. GENOTROPIN [Suspect]
     Active Substance: SOMATROPIN
     Indication: GROWTH RETARDATION
     Dosage: UNK, 1X/DAY
  6. GENOTROPIN [Suspect]
     Active Substance: SOMATROPIN
     Dosage: 1 ML, UNK
     Dates: start: 20190102
  7. GENOTROPIN [Suspect]
     Active Substance: SOMATROPIN
     Indication: GROWTH FAILURE
     Dosage: 1.2 MG, DAILY
     Dates: start: 20170323
  8. GENOTROPIN [Suspect]
     Active Substance: SOMATROPIN
     Indication: LOW BIRTH WEIGHT BABY
     Dosage: 1.2 ML, UNK
  9. GENOTROPIN [Suspect]
     Active Substance: SOMATROPIN
     Dosage: UNK

REACTIONS (7)
  - Incorrect route of product administration [Unknown]
  - Muscle twitching [Recovered/Resolved]
  - Intentional product use issue [Unknown]
  - Underdose [Unknown]
  - Muscle spasms [Recovered/Resolved]
  - Wrong technique in device usage process [Unknown]
  - Product dose omission [Unknown]

NARRATIVE: CASE EVENT DATE: 20180829
